FAERS Safety Report 6265761-8 (Version None)
Quarter: 2009Q3

REPORT INFORMATION
  Report Type: 
  Country: None (occurrence: None)
  Receive Date: 20090709
  Receipt Date: 20090709
  Transmission Date: 20100115
  Serious: No
  Sender: FDA-Public Use
  Company Number: None

PATIENT
  Age: 39 Year
  Sex: Male
  Weight: 80.7403 kg

DRUGS (1)
  1. ZICAM NOSE INHALER OTC ZICAM [Suspect]
     Indication: NASOPHARYNGITIS
     Dosage: ONE SQUIRT IN EACH NOSTRIL EVERY 3 HOURS NASAL
     Route: 045
     Dates: start: 20000901, end: 20090301

REACTIONS (1)
  - ANOSMIA [None]
